FAERS Safety Report 8834539 (Version 1)
Quarter: 2012Q4

REPORT INFORMATION
  Report Type: 
  Country: US (occurrence: US)
  Receive Date: 20121010
  Receipt Date: 20121010
  Transmission Date: 20130627
  Serious: No
  Sender: FDA-Public Use
  Company Number: US-BAYER-2012-104388

PATIENT
  Age: 40 Year
  Sex: Male
  Weight: 68.03 kg

DRUGS (7)
  1. ALEVE CAPLET/TABLET,MIDOL EXTENDED RELIEF CAPLET [Suspect]
     Indication: PAIN
     Dosage: 2 DF, TID
     Route: 048
     Dates: start: 2005
  2. ADVIL [Concomitant]
  3. TYLENOL [Concomitant]
  4. MOTRIN [Concomitant]
  5. AMOXICILLINE [Concomitant]
  6. METHYLPREDNISOLONE [METHYLPREDNISOLONE] [Concomitant]
  7. OXYCONTIN [Concomitant]

REACTIONS (2)
  - Diplopia [Not Recovered/Not Resolved]
  - Pain [None]
